FAERS Safety Report 18549251 (Version 5)
Quarter: 2020Q4

REPORT INFORMATION
  Report Type: Report from Study
  Country: CA (occurrence: CA)
  Receive Date: 20201126
  Receipt Date: 20201228
  Transmission Date: 20210114
  Serious: Yes (Hospitalization)
  Sender: FDA-Public Use
  Company Number: CA-JNJFOC-20201136066

PATIENT
  Age: 9 Year
  Sex: Male
  Weight: 30.2 kg

DRUGS (2)
  1. REMICADE [Suspect]
     Active Substance: INFLIXIMAB
     Indication: CROHN^S DISEASE
     Dosage: ON 20-NOV-2020, THE PATIENT RECEIVED 3RD INFLIXIMAB INFUSION FOR DOSE 300 MG?DOSE 10 MG/KG
     Route: 042
     Dates: start: 20201014
  2. CALCIUM;COLECALCIFEROL [Concomitant]
     Active Substance: CALCIUM\CHOLECALCIFEROL
     Indication: PRODUCT USED FOR UNKNOWN INDICATION
     Route: 048
     Dates: start: 20201218

REACTIONS (4)
  - Crohn^s disease [Not Recovered/Not Resolved]
  - Drug level decreased [Unknown]
  - Product use issue [Unknown]
  - Off label use [Unknown]

NARRATIVE: CASE EVENT DATE: 2020
